FAERS Safety Report 9689260 (Version 1)
Quarter: 2013Q4

REPORT INFORMATION
  Report Type: Spontaneous
  Country: US (occurrence: US)
  Receive Date: 20131114
  Receipt Date: 20131114
  Transmission Date: 20140711
  Serious: Yes (Other)
  Sender: FDA-Public Use
  Company Number: US-ABBVIE-13P-163-1166427-00

PATIENT
  Age: 57 Year
  Sex: Male
  Weight: 74.46 kg

DRUGS (2)
  1. HUMIRA [Suspect]
     Indication: RHEUMATOID ARTHRITIS
     Dates: start: 200510, end: 200606
  2. NAPROXEN SODIUM [Concomitant]
     Indication: ARTHRALGIA

REACTIONS (5)
  - Immunosuppression [Unknown]
  - Lymphoma [Recovered/Resolved]
  - Malignant lymphoid neoplasm [Recovered/Resolved]
  - Rash [Recovered/Resolved]
  - Sinusitis [Recovered/Resolved]
